FAERS Safety Report 5136684-2 (Version None)
Quarter: 2006Q4

REPORT INFORMATION
  Report Type: 
  Country: None (occurrence: None)
  Receive Date: 20061023
  Receipt Date: 20061013
  Transmission Date: 20070319
  Serious: Yes (Hospitalization)
  Sender: FDA-Public Use
  Company Number: 2006-BP-12016RO

PATIENT
  Age: 65 Year
  Sex: Male

DRUGS (9)
  1. PREDNISONE TAB [Suspect]
     Indication: IMMUNOSUPPRESSION
     Dosage: 5 MG (5 MG, 1 IN 1 D)
  2. CYCLOSPORINE [Suspect]
     Indication: IMMUNOSUPPRESSION
     Dosage: 200 MG (100 MG, 2 IN 1 D)
  3. MYCOPHENOLATE MOFETIL [Suspect]
     Indication: IMMUNOSUPPRESSION
     Dosage: 2500 MG (1250 MG, 2 IN 1 D)
  4. GANCICLOVER [Concomitant]
  5. NITAZOXANIDE [Concomitant]
  6. DAPSONE [Concomitant]
  7. MINOCYCLINE HCL [Concomitant]
  8. MOXIFLOXACIN HCL [Concomitant]
  9. ETHIONAMIDE [Concomitant]

REACTIONS (11)
  - CONDITION AGGRAVATED [None]
  - CYTOMEGALOVIRUS ANTIGEN POSITIVE [None]
  - GASTROENTERITIS CRYPTOSPORIDIAL [None]
  - HAEMODIALYSIS [None]
  - HYPOAESTHESIA [None]
  - LEPROMATOUS LEPROSY [None]
  - RENAL FAILURE [None]
  - RENAL TRANSPLANT [None]
  - SENSORY LOSS [None]
  - THERAPEUTIC AGENT TOXICITY [None]
  - WEIGHT DECREASED [None]
